FAERS Safety Report 4640572-5 (Version None)
Quarter: 2005Q1

REPORT INFORMATION
  Report Type: 
  Country: None (occurrence: None)
  Receive Date: 20050321
  Receipt Date: 20040408
  Transmission Date: 20050727
  Serious: Yes (Hospitalization)
  Sender: FDA-Public Use
  Company Number: 2004-04-0518

PATIENT
  Age: 54 Year
  Sex: Male
  Weight: 136.0791 kg

DRUGS (5)
  1. PEG-INTRON [Suspect]
     Indication: HEPATITIS C
     Dosage: 150 MCG QWK
     Dates: start: 20040318, end: 20040402
  2. REBETOL [Suspect]
     Indication: HEPATITIS C
     Dosage: 1200 MG QD ORAL
     Route: 048
     Dates: start: 20040318, end: 20040402
  3. BENADRYL [Concomitant]
  4. CENTRUM SILVER TABLETS [Concomitant]
  5. TYLENOL [Concomitant]

REACTIONS (1)
  - CELLULITIS [None]
